FAERS Safety Report 12887337 (Version 1)
Quarter: 2016Q4

REPORT INFORMATION
  Report Type: Report from Study
  Country: US (occurrence: US)
  Receive Date: 20161026
  Receipt Date: 20161026
  Transmission Date: 20170207
  Serious: Yes (Life-Threatening)
  Sender: FDA-Public Use
  Company Number: US-JAZZ-2016-US-006668

PATIENT
  Age: 9 Year
  Sex: Male

DRUGS (15)
  1. ESOMEPRAZOLE SODIUM. [Concomitant]
     Active Substance: ESOMEPRAZOLE SODIUM
  2. TPN [Concomitant]
     Active Substance: AMINO ACIDS\DEXTROSE\ELECTROLYTES NOS\SOYBEAN OIL
  3. DEFIBROTIDE (INV) [Suspect]
     Active Substance: DEFIBROTIDE SODIUM
     Indication: VENOOCCLUSIVE DISEASE
     Dosage: 680 MG, QD
     Route: 042
     Dates: start: 20140719, end: 20140806
  4. URSODIOL. [Concomitant]
     Active Substance: URSODIOL
  5. LEVOFLOXACIN. [Concomitant]
     Active Substance: LEVOFLOXACIN
  6. ONDANSETRON [Concomitant]
     Active Substance: ONDANSETRON
  7. CEFEPIME [Concomitant]
     Active Substance: CEFEPIME HYDROCHLORIDE
  8. GANCICLOVIR. [Concomitant]
     Active Substance: GANCICLOVIR
  9. MICAFUNGIN [Concomitant]
     Active Substance: MICAFUNGIN
  10. MORPHINE SULF [Concomitant]
     Active Substance: MORPHINE SULFATE
  11. DIPHENHYDRAMINE. [Concomitant]
     Active Substance: DIPHENHYDRAMINE
  12. ALBUMIN HUMAN [Concomitant]
     Active Substance: ALBUMIN HUMAN
  13. TACROLIMUS. [Concomitant]
     Active Substance: TACROLIMUS
  14. ACETAMINOPHEN. [Concomitant]
     Active Substance: ACETAMINOPHEN
  15. LINEZOLID. [Concomitant]
     Active Substance: LINEZOLID

REACTIONS (2)
  - Renal failure [Not Recovered/Not Resolved]
  - Respiratory failure [Recovered/Resolved with Sequelae]

NARRATIVE: CASE EVENT DATE: 20140722
